FAERS Safety Report 19792582 (Version 5)
Quarter: 2021Q3

REPORT INFORMATION
  Report Type: Other
  Country: AR (occurrence: AR)
  Receive Date: 20210906
  Receipt Date: 20210927
  Transmission Date: 20211014
  Serious: Yes (Hospitalization, Other)
  Sender: FDA-Public Use
  Company Number: AR-ROCHE-2893900

PATIENT
  Age: 48 Year
  Sex: Female

DRUGS (2)
  1. SATRALIZUMAB. [Suspect]
     Active Substance: SATRALIZUMAB
     Indication: NEUROMYELITIS OPTICA SPECTRUM DISORDER
     Route: 065
  2. MYCOPHENOLATE MOFETIL. [Concomitant]
     Active Substance: MYCOPHENOLATE MOFETIL
     Indication: PRODUCT USED FOR UNKNOWN INDICATION
     Dates: start: 2019

REACTIONS (19)
  - Vomiting [Unknown]
  - Cholecystitis [Unknown]
  - Cholelithiasis [Unknown]
  - Back pain [Unknown]
  - Thrombocytopenia [Unknown]
  - Sepsis [Unknown]
  - Procedural haemorrhage [Unknown]
  - Pyrexia [Unknown]
  - Abdominal pain [Unknown]
  - Coagulation test abnormal [Unknown]
  - Fall [Unknown]
  - Dizziness [Unknown]
  - Anaemia [Unknown]
  - Dengue fever [Unknown]
  - Contusion [Unknown]
  - Electric shock sensation [Unknown]
  - Peritonitis [Unknown]
  - Pleural thickening [Unknown]
  - Vertigo [Unknown]

NARRATIVE: CASE EVENT DATE: 20210816
